FAERS Safety Report 4639977-8 (Version None)
Quarter: 2005Q2

REPORT INFORMATION
  Report Type: 
  Country: None (occurrence: None)
  Receive Date: 20050415
  Receipt Date: 20050415
  Transmission Date: 20051028
  Serious: Yes (Other)
  Sender: FDA-Public Use
  Company Number: None

PATIENT
  Age: 6 Year
  Sex: Female
  Weight: 51 kg

DRUGS (1)
  1. RHINOCORT [Suspect]
     Indication: UPPER AIRWAY RESISTANCE SYNDROME
     Dosage: 1 PUFF NASALLY, DAILY
     Route: 045
     Dates: start: 20050217, end: 20050303

REACTIONS (1)
  - EPISTAXIS [None]
